FAERS Safety Report 24558905 (Version 2)
Quarter: 2024Q4

REPORT INFORMATION
  Report Type: Spontaneous
  Country: US (occurrence: US)
  Receive Date: 20241029
  Receipt Date: 20241114
  Transmission Date: 20250115
  Serious: No
  Sender: ABBVIE
  Company Number: US-ABBVIE-5982434

PATIENT
  Age: 75 Year
  Sex: Female

DRUGS (1)
  1. ARMOUR THYROID [Suspect]
     Active Substance: THYROID, PORCINE
     Indication: Hypothyroidism
     Dosage: FORM STRENGTH; 120 MILLIGRAM
     Route: 048

REACTIONS (3)
  - Burning sensation [Unknown]
  - Therapeutic product effect decreased [Not Recovered/Not Resolved]
  - General symptom [Not Recovered/Not Resolved]
